FAERS Safety Report 24179828 (Version 1)
Quarter: 2024Q3

REPORT INFORMATION
  Report Type: Spontaneous
  Country: US (occurrence: None)
  Receive Date: 20240805
  Receipt Date: 20240805
  Transmission Date: 20241017
  Serious: Yes (Hospitalization)
  Sender: Public
  Company Number: None

PATIENT
  Sex: Male

DRUGS (4)
  1. VIGABATRIN [Suspect]
     Active Substance: VIGABATRIN
     Indication: Epilepsy
     Dosage: SEE IMAGE
     Route: 048
     Dates: start: 202309
  2. VIGABATRIN [Suspect]
     Active Substance: VIGABATRIN
     Indication: Disease susceptibility
  3. VIGABATRIN [Suspect]
     Active Substance: VIGABATRIN
     Indication: Hereditary disorder
  4. EPIDIOLEX ORAL SOLN [Concomitant]

REACTIONS (1)
  - Hospitalisation [None]
